FAERS Safety Report 14561463 (Version 1)
Quarter: 2018Q1

REPORT INFORMATION
  Report Type: Spontaneous
  Country: US (occurrence: US)
  Receive Date: 20180221
  Receipt Date: 20180221
  Transmission Date: 20180509
  Serious: Yes (Hospitalization)
  Sender: FDA-Public Use
  Company Number: None

PATIENT
  Age: 63 Year
  Sex: Female

DRUGS (21)
  1. SIMVASTATIN. [Concomitant]
     Active Substance: SIMVASTATIN
  2. ZIAC [Concomitant]
     Active Substance: BISOPROLOL FUMARATE\HYDROCHLOROTHIAZIDE
  3. FOLIC ACID. [Concomitant]
     Active Substance: FOLIC ACID
  4. ASPIRIN (LOW DOSE) [Concomitant]
  5. TEGRETOL [Concomitant]
     Active Substance: CARBAMAZEPINE
  6. NORVASC [Concomitant]
     Active Substance: AMLODIPINE BESYLATE
  7. GLUCOSAMINE/CHONDROTOIN [Concomitant]
  8. ZOFRAN [Concomitant]
     Active Substance: ONDANSETRON HYDROCHLORIDE
  9. FOSAMAX [Concomitant]
     Active Substance: ALENDRONATE SODIUM
  10. CALCIUM + D [Concomitant]
     Active Substance: CALCIUM\VITAMIN D
  11. PLAQUENIL [Concomitant]
     Active Substance: HYDROXYCHLOROQUINE SULFATE
  12. CYMBALTA [Concomitant]
     Active Substance: DULOXETINE HYDROCHLORIDE
  13. NIACIN. [Concomitant]
     Active Substance: NIACIN
  14. FAMOTIDINE. [Concomitant]
     Active Substance: FAMOTIDINE
  15. ORENCIA [Suspect]
     Active Substance: ABATACEPT
     Indication: RHEUMATOID ARTHRITIS
     Dosage: 1 PFS Q 7 DAYS AS DIRECTED BY MD
     Dates: start: 20170824
  16. FLONASE [Concomitant]
     Active Substance: FLUTICASONE PROPIONATE
  17. PREDNISONE. [Concomitant]
     Active Substance: PREDNISONE
  18. HCTZ [Concomitant]
     Active Substance: HYDROCHLOROTHIAZIDE
  19. MULTI-VITAMIN [Concomitant]
     Active Substance: .ALPHA.-TOCOPHEROL ACETATE, DL-\ASCORBIC ACID\CYANOCOBALAMIN\FLUORIDE ION\FOLIC ACID\NIACIN\PYRIDOXINE\RIBOFLAVIN\THIAMINE\VITAMIN A\VITAMIN D
  20. FISH OIL [Concomitant]
     Active Substance: FISH OIL
  21. METHOTREXATE. [Concomitant]
     Active Substance: METHOTREXATE

REACTIONS (1)
  - Malaise [None]

NARRATIVE: CASE EVENT DATE: 2018
